FAERS Safety Report 9834650 (Version 7)
Quarter: 2014Q1

REPORT INFORMATION
  Report Type: Spontaneous
  Country: US (occurrence: US)
  Receive Date: 20140122
  Receipt Date: 20140320
  Transmission Date: 20141002
  Serious: Yes (Other)
  Sender: FDA-Public Use
  Company Number: US-PFIZER INC-2014016926

PATIENT
  Age: 49 Year
  Sex: Male

DRUGS (18)
  1. INLYTA [Suspect]
     Indication: RENAL CELL CARCINOMA
     Dosage: 5 MG, UNK
     Dates: start: 20131224
  2. INLYTA [Suspect]
     Dosage: 5 MG, UNK
     Dates: start: 20140121, end: 20140125
  3. INLYTA [Suspect]
     Dosage: 5 MG, UNK
     Dates: start: 20140129
  4. INLYTA [Suspect]
     Dosage: 5 MG, UNK
     Route: 048
     Dates: start: 20131223
  5. INLYTA [Suspect]
     Dosage: 5 MG, 2X/DAY
     Route: 048
     Dates: start: 20140223, end: 20140307
  6. OXYCODONE [Concomitant]
     Indication: PAIN
     Dosage: 10 MG, AS NEEDED (1-2 94 DEGREE)
  7. OXYCONTIN [Concomitant]
     Indication: PAIN
     Dosage: 20 MG, 2X/DAY
  8. AMLODIPINE [Concomitant]
     Dosage: 10 MG, DAILY
  9. ASA [Concomitant]
     Indication: CEREBROVASCULAR ACCIDENT
     Dosage: 325 MG, DAILY
  10. ATIVAN [Concomitant]
     Indication: NAUSEA
     Dosage: 0.5 MG TO 1 MG AS NEEDED
  11. ATIVAN [Concomitant]
     Indication: ANXIETY
  12. FLEXERIL [Concomitant]
     Indication: PAIN
     Dosage: 10 MG, 3X/DAY
  13. GABAPENTIN [Concomitant]
     Indication: PAIN
     Dosage: 600 MG, 3X/DAY
  14. METFORMIN [Concomitant]
     Indication: DIABETES MELLITUS
     Dosage: 500 MG, 2X/DAY
  15. CLONIDINE [Concomitant]
     Dosage: UNK
  16. ISOSORBIDE [Concomitant]
     Dosage: 5 MG, DAILY
  17. METOPROLOL [Concomitant]
     Indication: HYPERTENSION
     Dosage: 50 MG, 2X/DAY (DAILY)
  18. SIMVASTATIN [Concomitant]
     Indication: BLOOD CHOLESTEROL INCREASED
     Dosage: 40 MG, DAILY

REACTIONS (18)
  - Abasia [Unknown]
  - Gout [Recovering/Resolving]
  - Lower respiratory tract infection [Unknown]
  - Nasopharyngitis [Recovering/Resolving]
  - Pain [Recovering/Resolving]
  - Constipation [Unknown]
  - Abdominal discomfort [Unknown]
  - Vomiting [Unknown]
  - Fatigue [Unknown]
  - Dizziness [Unknown]
  - Hypertension [Unknown]
  - Feeling abnormal [Unknown]
  - Pleural effusion [Unknown]
  - Abdominal pain upper [Unknown]
  - Pruritus [Unknown]
  - Blood creatinine increased [Unknown]
  - Chest pain [Unknown]
  - Arthritis [Recovering/Resolving]
